FAERS Safety Report 9551372 (Version 1)
Quarter: 2013Q2

REPORT INFORMATION
  Report Type: Spontaneous
  Country: US (occurrence: None)
  Receive Date: 20130627
  Receipt Date: 20130627
  Transmission Date: 20140414
  Serious: No
  Sender: FDA-Public Use
  Company Number: 1000045601

PATIENT
  Age: 68 Year
  Sex: Female

DRUGS (14)
  1. LINZESS (LINACLOTIDE) (145 MICROGRAM, CAPSULES) [Suspect]
     Indication: IRRITABLE BOWEL SYNDROME
     Route: 048
     Dates: start: 20130530, end: 20130530
  2. METOLAZONE (METOLAZONE) [Concomitant]
  3. FUROSEMIDE (FUROSEMIDE) [Concomitant]
  4. ZOFRAN (ONDANSETRON) (ONDANSETRON) [Concomitant]
  5. DEXILANT (DEXLANSOPRAZOLE) (DEXLANSOPRAZOLE) [Concomitant]
  6. TORSEMIDE (TORASEMIDE) (TORASEMIDE) [Concomitant]
  7. PREDNISONE (PREDNISONE) [Concomitant]
  8. LANTUS (INSULIN GLARGINE) (INSULIN GLARGINE) [Concomitant]
  9. NOVOLOG (INSULIN ASPART) (INSULIN ASPART) [Concomitant]
  10. POTASSIUM CHLORIDE (POTASSIUM CHLORIDE) [Concomitant]
  11. VITAMIN D3 (COLECALCIFEROL) (COLECALCIFEROL) [Concomitant]
  12. COMBIVENT (IPRATROPIUM, ALBUTEROL) (IPRATROPIUM, ALBUTEROL) [Concomitant]
  13. HYDROCODONE (HYDROCODONE) [Concomitant]
  14. DALIRESP (ROFLUMILAST) (ROFLUMILAST) [Concomitant]

REACTIONS (4)
  - Dizziness [None]
  - Muscular weakness [None]
  - Malaise [None]
  - Heart rate increased [None]
